FAERS Safety Report 21062506 (Version 1)
Quarter: 2022Q3

REPORT INFORMATION
  Report Type: Spontaneous
  Country: DE (occurrence: DE)
  Receive Date: 20220711
  Receipt Date: 20220711
  Transmission Date: 20221027
  Serious: Yes (Death, Other)
  Sender: FDA-Public Use
  Company Number: DE-EMBRYOTOX-202104559

PATIENT
  Sex: Female
  Weight: 60 kg

DRUGS (7)
  1. QUETIAPINE [Suspect]
     Active Substance: QUETIAPINE
     Indication: Depression
     Dosage: 25 MILLIGRAM, 3 TIMES A DAY (75 MG/D 25-25-25)
     Route: 048
     Dates: start: 20210323, end: 20210702
  2. VENLAFAXINE [Suspect]
     Active Substance: VENLAFAXINE HYDROCHLORIDE
     Indication: Depression
     Dosage: (225 MG/D BIS 150 MG/D REDUCTION TO 150 MG/D AT GW 23 1/7)
     Route: 048
     Dates: start: 20210120, end: 20210731
  3. LITHIUM CARBONATE [Suspect]
     Active Substance: LITHIUM CARBONATE
     Indication: Depression
     Dosage: 450 MILLIGRAM, TWO TIMES A DAY (900 MG/D (450-0-450)
     Route: 048
     Dates: start: 20210422, end: 20210731
  4. AMIODARONE [Concomitant]
     Active Substance: AMIODARONE
     Indication: Tachycardia foetal
     Dosage: 2 DOSAGE FORM (TWO APPLICATIONS TOTAL)
     Route: 015
     Dates: start: 20210726, end: 20210730
  5. FLECAINIDE [Concomitant]
     Active Substance: FLECAINIDE
     Indication: Tachycardia foetal
     Dosage: 800 MG/D(BIS 400)
     Route: 048
     Dates: start: 20210701, end: 20210730
  6. METOPROLOL SUCCINATE [Concomitant]
     Active Substance: METOPROLOL SUCCINATE
     Indication: Tachycardia foetal
     Dosage: 95 MILLIGRAM, ONCE A DAY  (95 MG/D 2X 47.5)
     Route: 048
     Dates: start: 20210701, end: 20210730
  7. Tavor [Concomitant]
     Indication: Depression
     Dosage: UNK
     Route: 048
     Dates: start: 20210421, end: 20210421

REACTIONS (2)
  - Foetal death [Fatal]
  - Maternal exposure during pregnancy [Unknown]
